FAERS Safety Report 8017115-1 (Version None)
Quarter: 2012Q1

REPORT INFORMATION
  Report Type: 
  Country: None (occurrence: None)
  Receive Date: 20120102
  Receipt Date: 20111222
  Transmission Date: 20120608
  Serious: Yes (Hospitalization)
  Sender: FDA-Public Use
  Company Number: JP-ROCHE-754349

PATIENT
  Sex: Female

DRUGS (20)
  1. ACTEMRA [Suspect]
     Route: 041
     Dates: start: 20080903, end: 20080903
  2. ACTEMRA [Suspect]
     Route: 041
     Dates: start: 20090108, end: 20090108
  3. ACTEMRA [Suspect]
     Route: 041
     Dates: start: 20090514, end: 20090514
  4. PREDNISOLONE [Suspect]
     Indication: RHEUMATOID ARTHRITIS
     Route: 048
  5. LENDORMIN [Concomitant]
     Route: 048
  6. ACTEMRA [Suspect]
     Route: 041
     Dates: start: 20081110, end: 20081110
  7. ACTEMRA [Suspect]
     Route: 041
     Dates: start: 20090408, end: 20090408
  8. ACTEMRA [Suspect]
     Indication: RHEUMATOID ARTHRITIS
     Route: 041
     Dates: start: 20080804, end: 20080804
  9. ACTEMRA [Suspect]
     Route: 041
     Dates: start: 20090708, end: 20090708
  10. SOLON [Concomitant]
     Dosage: FORM: MINUTE GRAIN
     Route: 048
  11. RISEDRONATE SODIUM [Concomitant]
     Route: 048
  12. ACTEMRA [Suspect]
     Route: 041
     Dates: start: 20081208, end: 20081208
  13. NIZATIDINE [Concomitant]
     Route: 048
  14. TICLOPIDINE HYDROCHLORIDE [Concomitant]
     Dosage: FORM: PERORAL AGENT.
     Route: 048
  15. ACTEMRA [Suspect]
     Route: 041
     Dates: start: 20081008, end: 20081008
  16. ACTEMRA [Suspect]
     Route: 041
     Dates: start: 20090306, end: 20090306
  17. ACTEMRA [Suspect]
     Route: 041
     Dates: start: 20090206, end: 20090206
  18. METHOTREXATE [Suspect]
     Indication: RHEUMATOID ARTHRITIS
     Route: 048
  19. ETODOLAC [Concomitant]
     Route: 048
  20. FOLIC ACID [Concomitant]
     Route: 048

REACTIONS (3)
  - KNEE ARTHROPLASTY [None]
  - SPINAL OSTEOARTHRITIS [None]
  - PHARYNGITIS [None]
